FAERS Safety Report 10033337 (Version 1)
Quarter: 2014Q1

REPORT INFORMATION
  Report Type: Spontaneous
  Country: ES (occurrence: ES)
  Receive Date: 20140325
  Receipt Date: 20140325
  Transmission Date: 20141002
  Serious: Yes (Other)
  Sender: FDA-Public Use
  Company Number: ES-ROCHE-1369389

PATIENT
  Age: 68 Year
  Sex: Male

DRUGS (2)
  1. LUCENTIS [Suspect]
     Indication: PRODUCT USED FOR UNKNOWN INDICATION
     Route: 050
     Dates: start: 20080609
  2. LUCENTIS [Suspect]
     Route: 050
     Dates: start: 20080722

REACTIONS (3)
  - Hepatitis [Unknown]
  - Choluria [Unknown]
  - Jaundice [Unknown]
